FAERS Safety Report 7752343-1 (Version None)
Quarter: 2011Q3

REPORT INFORMATION
  Report Type: 
  Country: None (occurrence: None)
  Receive Date: 20110915
  Receipt Date: 20110901
  Transmission Date: 20111222
  Serious: No
  Sender: FDA-Public Use
  Company Number: CA-ELI_LILLY_AND_COMPANY-CA201109000171

PATIENT
  Sex: Male

DRUGS (9)
  1. RISPERDAL [Concomitant]
  2. NEFAZODONE [Concomitant]
  3. ZYPREXA [Suspect]
     Dosage: 5 MG, UNK
  4. ZYPREXA ZYDIS [Suspect]
     Dosage: 5 MG, UNK
  5. TRAZODONE HCL [Concomitant]
  6. WELLBUTRIN [Concomitant]
  7. ZYPREXA [Suspect]
     Dosage: 10 MG, UNK
  8. LIPITOR [Concomitant]
  9. ZYPREXA ZYDIS [Suspect]
     Dosage: 10 MG, UNK

REACTIONS (2)
  - WHITE BLOOD CELL COUNT INCREASED [None]
  - DIABETES MELLITUS [None]
